FAERS Safety Report 5162163-2 (Version None)
Quarter: 2006Q4

REPORT INFORMATION
  Report Type: 
  Country: None (occurrence: None)
  Receive Date: 20061121
  Receipt Date: 20061110
  Transmission Date: 20070319
  Serious: Yes (Other)
  Sender: FDA-Public Use
  Company Number: CHNY2006DE02714

PATIENT
  Age: 63 Year
  Sex: Female
  Weight: 77 kg

DRUGS (4)
  1. NICOTINE [Suspect]
     Indication: SMOKING CESSATION THERAPY
     Dosage: 14 MG, QD, TRANSDERMAL
     Route: 062
     Dates: start: 20060927, end: 20060929
  2. HYPERICUM (HYPERICUM PERFORATUM EXTRACT) [Concomitant]
  3. MODURETIC 5-50 [Concomitant]
  4. METOPROLOL RATIOPHARM  (METOPROLOL TARTRATE) [Concomitant]

REACTIONS (3)
  - ERYTHEMA [None]
  - ORAL PUSTULE [None]
  - RASH PUSTULAR [None]
